FAERS Safety Report 6062566-8 (Version None)
Quarter: 2009Q1

REPORT INFORMATION
  Report Type: 
  Country: None (occurrence: None)
  Receive Date: 20090129
  Receipt Date: 20090115
  Transmission Date: 20090719
  Serious: Yes (Other)
  Sender: FDA-Public Use
  Company Number: CIP09000038

PATIENT
  Age: 75 Year
  Sex: Female

DRUGS (7)
  1. ACTONEL SACHET KIT (RISEDROANTE SODIUM 35 MG, CALCIUM CARBONATE 2500 M [Suspect]
     Dosage: 1 DOSE FORM CYCLIC DAILY, ORAL
     Route: 048
     Dates: start: 20080601, end: 20081201
  2. NEXIUM [Concomitant]
  3. MOTILIUM /00384302/ (LOPERAMIDE HYDROCHLORIDE) [Concomitant]
  4. CELEBREX [Concomitant]
  5. ADALAT [Concomitant]
  6. NORVASC /00972401/ (AMLODIPINE) [Concomitant]
  7. ASPIRIN [Concomitant]

REACTIONS (3)
  - CONDITION AGGRAVATED [None]
  - GASTROOESOPHAGEAL REFLUX DISEASE [None]
  - MALAISE [None]
